FAERS Safety Report 6922222-8 (Version None)
Quarter: 2010Q3

REPORT INFORMATION
  Report Type: 
  Country: None (occurrence: None)
  Receive Date: 20100811
  Receipt Date: 20100729
  Transmission Date: 20110219
  Serious: Yes (Hospitalization)
  Sender: FDA-Public Use
  Company Number: 2010-00792

PATIENT
  Age: 63 Year
  Sex: Male
  Weight: 122.9248 kg

DRUGS (4)
  1. LISINOPRIL [Suspect]
     Indication: HYPERTENSION
     Dosage: 10 MG (1 IN 1 D), PER ORAL, 20 MG (1 IN 1 D), PER ORAL
     Route: 048
     Dates: start: 20091221, end: 20100302
  2. LISINOPRIL [Suspect]
     Indication: PRODUCT USED FOR UNKNOWN INDICATION
     Dosage: 10 MG (1 IN 1 D), PER ORAL, 20 MG (1 IN 1 D), PER ORAL
     Route: 048
     Dates: start: 20091221, end: 20100302
  3. DOUBLE-BLIND STUDY DRUG [Suspect]
     Indication: HYPERTENSION
     Dates: start: 20100118, end: 20100302
  4. SIMVASTATIN [Concomitant]

REACTIONS (6)
  - BLOOD GLUCOSE INCREASED [None]
  - BLOOD PRESSURE INCREASED [None]
  - CARDIAC MURMUR [None]
  - CORONARY ARTERY DISEASE [None]
  - CORONARY ARTERY STENOSIS [None]
  - MYOCARDIAL INFARCTION [None]
